FAERS Safety Report 7762254-3 (Version None)
Quarter: 2011Q3

REPORT INFORMATION
  Report Type: 
  Country: None (occurrence: None)
  Receive Date: 20110920
  Receipt Date: 20110916
  Transmission Date: 20111222
  Serious: Yes (Other)
  Sender: FDA-Public Use
  Company Number: FR-ROCHE-792013

PATIENT
  Sex: Male

DRUGS (2)
  1. BONIVA [Suspect]
     Dosage: DOSE INCREASED.
     Route: 048
  2. BONIVA [Suspect]
     Indication: OSTEOPOROSIS
     Route: 048

REACTIONS (1)
  - SWEAT GLAND TUMOUR [None]
